FAERS Safety Report 12723733 (Version 1)
Quarter: 2016Q3

REPORT INFORMATION
  Report Type: Spontaneous
  Country: US (occurrence: US)
  Receive Date: 20160906
  Receipt Date: 20160906
  Transmission Date: 20161109
  Serious: No
  Sender: FDA-Public Use
  Company Number: None

PATIENT
  Age: 59 Year
  Sex: Male

DRUGS (1)
  1. OLYSIO [Suspect]
     Active Substance: SIMEPREVIR

REACTIONS (2)
  - Rash [None]
  - Headache [None]

NARRATIVE: CASE EVENT DATE: 20160901
